FAERS Safety Report 7265298-3 (Version None)
Quarter: 2011Q1

REPORT INFORMATION
  Report Type: 
  Country: None (occurrence: None)
  Receive Date: 20110131
  Receipt Date: 20101217
  Transmission Date: 20110831
  Serious: Yes (Death, Life-Threatening, Other)
  Sender: FDA-Public Use
  Company Number: US-BAXTER-2009BH018171

PATIENT
  Age: 58 Year
  Sex: Female

DRUGS (77)
  1. HEPARIN SODIUM INJECTION [Suspect]
     Route: 042
     Dates: start: 20071024, end: 20071024
  2. HEPARIN SODIUM INJECTION [Suspect]
     Route: 040
     Dates: start: 20071102, end: 20071217
  3. HEPARIN SODIUM INJECTION [Suspect]
     Route: 042
     Dates: start: 20070101, end: 20070101
  4. HEPARIN SODIUM INJECTION [Suspect]
     Route: 042
     Dates: start: 20070101, end: 20070101
  5. HEPARIN SODIUM INJECTION [Suspect]
     Route: 042
     Dates: start: 20071002, end: 20071002
  6. HEPARIN SODIUM INJECTION [Suspect]
     Route: 042
     Dates: start: 20070101, end: 20070101
  7. HEPARIN SODIUM INJECTION [Suspect]
     Route: 042
     Dates: start: 20071223, end: 20071223
  8. HEPARIN SODIUM INJECTION [Suspect]
     Route: 042
     Dates: start: 20071223, end: 20071223
  9. LOPRESSOR [Concomitant]
     Indication: PRODUCT USED FOR UNKNOWN INDICATION
     Route: 048
  10. NITROSTAT [Concomitant]
     Indication: PRODUCT USED FOR UNKNOWN INDICATION
     Route: 060
  11. DEXTROSE [Concomitant]
     Indication: PRODUCT USED FOR UNKNOWN INDICATION
     Route: 065
  12. HEPARIN SODIUM INJECTION [Suspect]
     Route: 042
     Dates: start: 20070101, end: 20070101
  13. HEPARIN SODIUM INJECTION [Suspect]
     Route: 042
     Dates: start: 20071006, end: 20071006
  14. HEPARIN SODIUM INJECTION [Suspect]
     Route: 042
     Dates: start: 20070101, end: 20070101
  15. HEPARIN SODIUM INJECTION [Suspect]
     Route: 042
     Dates: start: 20070101, end: 20070101
  16. HEPARIN SODIUM INJECTION [Suspect]
     Route: 042
     Dates: start: 20070101, end: 20070101
  17. PLAVIX [Concomitant]
     Indication: PRODUCT USED FOR UNKNOWN INDICATION
     Route: 065
  18. LASIX [Concomitant]
     Indication: PRODUCT USED FOR UNKNOWN INDICATION
     Route: 048
  19. ACTOS [Concomitant]
     Indication: PRODUCT USED FOR UNKNOWN INDICATION
     Route: 048
  20. KLOR-CON [Concomitant]
     Indication: PRODUCT USED FOR UNKNOWN INDICATION
     Route: 065
  21. NPH INSULIN [Concomitant]
     Indication: PRODUCT USED FOR UNKNOWN INDICATION
     Route: 065
  22. FOSRENOL [Concomitant]
     Indication: PRODUCT USED FOR UNKNOWN INDICATION
     Route: 048
  23. PROCRIT [Concomitant]
     Indication: PRODUCT USED FOR UNKNOWN INDICATION
     Route: 065
  24. NASONEX [Concomitant]
     Indication: PRODUCT USED FOR UNKNOWN INDICATION
     Route: 065
  25. HEPARIN SODIUM INJECTION [Suspect]
     Route: 042
     Dates: start: 20071009, end: 20071223
  26. HEPARIN SODIUM INJECTION [Suspect]
     Route: 042
     Dates: start: 20071024, end: 20071024
  27. HEPARIN SODIUM INJECTION [Suspect]
     Route: 042
     Dates: start: 20071012
  28. HEPARIN SODIUM INJECTION [Suspect]
     Route: 042
     Dates: start: 20070101, end: 20070101
  29. HEPARIN SODIUM INJECTION [Suspect]
     Route: 042
     Dates: start: 20071006, end: 20071006
  30. HEPARIN SODIUM INJECTION [Suspect]
     Route: 042
     Dates: start: 20071004, end: 20071004
  31. HEPARIN SODIUM INJECTION [Suspect]
     Route: 042
     Dates: start: 20071002, end: 20071002
  32. HEPARIN SODIUM INJECTION [Suspect]
     Route: 042
     Dates: start: 20070101, end: 20070101
  33. HEPARIN SODIUM INJECTION [Suspect]
     Route: 042
     Dates: start: 20071223, end: 20071223
  34. ENTERIC ASPIRIN [Concomitant]
     Indication: PRODUCT USED FOR UNKNOWN INDICATION
     Route: 065
  35. GLIPIZIDE [Concomitant]
     Indication: PRODUCT USED FOR UNKNOWN INDICATION
     Route: 065
  36. ASA [Concomitant]
     Indication: PRODUCT USED FOR UNKNOWN INDICATION
     Route: 065
  37. HEPARIN SODIUM INJECTION [Suspect]
     Indication: HAEMODIALYSIS
     Route: 058
     Dates: start: 20070930, end: 20071004
  38. HEPARIN SODIUM INJECTION [Suspect]
     Route: 042
     Dates: start: 20070101, end: 20070101
  39. HEPARIN SODIUM INJECTION [Suspect]
     Route: 042
     Dates: start: 20071004, end: 20071004
  40. HEPARIN SODIUM INJECTION [Suspect]
     Route: 042
     Dates: start: 20070101, end: 20070101
  41. HEPARIN SODIUM INJECTION [Suspect]
     Route: 042
     Dates: start: 20071223, end: 20071223
  42. CALCITRIOL [Concomitant]
     Indication: PRODUCT USED FOR UNKNOWN INDICATION
     Route: 065
  43. ZOLOFT [Concomitant]
     Indication: PRODUCT USED FOR UNKNOWN INDICATION
     Route: 065
  44. ACETAMINOPHEN [Concomitant]
     Indication: PRODUCT USED FOR UNKNOWN INDICATION
     Route: 065
  45. NEPHROCAPS [Concomitant]
     Indication: PRODUCT USED FOR UNKNOWN INDICATION
     Route: 048
  46. NOVOLOG [Concomitant]
     Indication: PRODUCT USED FOR UNKNOWN INDICATION
     Route: 065
  47. HEPARIN SODIUM INJECTION [Suspect]
     Indication: THROMBOSIS PROPHYLAXIS
     Route: 058
     Dates: start: 20070930, end: 20071004
  48. HEPARIN SODIUM INJECTION [Suspect]
     Route: 042
     Dates: start: 20071003, end: 20071003
  49. HEPARIN SODIUM INJECTION [Suspect]
     Route: 040
     Dates: start: 20071019, end: 20071031
  50. HEPARIN SODIUM INJECTION [Suspect]
     Route: 042
     Dates: start: 20070101, end: 20070101
  51. HEPARIN SODIUM INJECTION [Suspect]
     Route: 042
     Dates: start: 20071012, end: 20071012
  52. HEPARIN SODIUM INJECTION [Suspect]
     Route: 042
     Dates: start: 20071012, end: 20071012
  53. HEPARIN SODIUM INJECTION [Suspect]
     Route: 042
     Dates: start: 20070101, end: 20070101
  54. ALPRAZOLAM [Concomitant]
     Indication: PRODUCT USED FOR UNKNOWN INDICATION
     Route: 065
  55. GABAPENTIN [Concomitant]
     Indication: PRODUCT USED FOR UNKNOWN INDICATION
     Route: 065
  56. HEPARIN SODIUM INJECTION [Suspect]
     Route: 042
     Dates: start: 20071009, end: 20071223
  57. HEPARIN SODIUM INJECTION [Suspect]
     Route: 042
     Dates: start: 20070101, end: 20070101
  58. HEPARIN SODIUM INJECTION [Suspect]
     Route: 042
     Dates: start: 20071003, end: 20071003
  59. HEPARIN SODIUM INJECTION [Suspect]
     Route: 040
     Dates: start: 20071019, end: 20071031
  60. HEPARIN SODIUM INJECTION [Suspect]
     Route: 042
     Dates: start: 20071012
  61. HEPARIN SODIUM INJECTION [Suspect]
     Route: 042
     Dates: start: 20071005, end: 20071005
  62. HEPARIN SODIUM INJECTION [Suspect]
     Route: 042
     Dates: start: 20070101, end: 20070101
  63. ALPRAZOLAM [Concomitant]
     Route: 065
  64. FUROSEMIDE [Concomitant]
     Indication: PRODUCT USED FOR UNKNOWN INDICATION
     Route: 065
  65. EPOGEN [Concomitant]
     Indication: PRODUCT USED FOR UNKNOWN INDICATION
     Route: 058
     Dates: start: 20071102, end: 20071217
  66. HEPARIN SODIUM INJECTION [Suspect]
     Route: 040
     Dates: start: 20071102, end: 20071217
  67. HEPARIN SODIUM INJECTION [Suspect]
     Route: 042
     Dates: start: 20071005, end: 20071005
  68. FENOFIBRATE [Concomitant]
     Indication: PRODUCT USED FOR UNKNOWN INDICATION
     Route: 048
  69. NEURONTIN [Concomitant]
     Indication: PRODUCT USED FOR UNKNOWN INDICATION
     Route: 048
  70. CLARITIN [Concomitant]
     Indication: PRODUCT USED FOR UNKNOWN INDICATION
     Route: 048
  71. PRILOSEC [Concomitant]
     Indication: PRODUCT USED FOR UNKNOWN INDICATION
     Route: 065
  72. ZEMPLAR [Concomitant]
     Indication: PRODUCT USED FOR UNKNOWN INDICATION
     Route: 042
  73. HEPARIN SODIUM INJECTION [Suspect]
     Route: 042
     Dates: start: 20070101, end: 20070101
  74. HEPARIN SODIUM INJECTION [Suspect]
     Route: 042
     Dates: start: 20071223, end: 20071223
  75. HEPARIN SODIUM INJECTION [Suspect]
     Route: 042
     Dates: start: 20071223, end: 20071223
  76. ALLOPURINOL [Concomitant]
     Indication: PRODUCT USED FOR UNKNOWN INDICATION
     Route: 048
  77. DIPHENHYDRAMINE [Concomitant]
     Indication: PRODUCT USED FOR UNKNOWN INDICATION
     Route: 065

REACTIONS (20)
  - HYPERTENSION [None]
  - FEELING COLD [None]
  - MALAISE [None]
  - VOMITING [None]
  - ASTHENIA [None]
  - NAUSEA [None]
  - ACUTE MYOCARDIAL INFARCTION [None]
  - CARDIO-RESPIRATORY ARREST [None]
  - ABDOMINAL PAIN [None]
  - NERVOUSNESS [None]
  - ARTERIOSCLEROSIS CORONARY ARTERY [None]
  - PULSELESS ELECTRICAL ACTIVITY [None]
  - OEDEMA [None]
  - DIARRHOEA [None]
  - ANAEMIA [None]
  - TYPE 2 DIABETES MELLITUS [None]
  - LOSS OF CONSCIOUSNESS [None]
  - DYSPNOEA [None]
  - CHEST PAIN [None]
  - HYPOTENSION [None]
